FAERS Safety Report 13597593 (Version 1)
Quarter: 2017Q2

REPORT INFORMATION
  Report Type: Report from Study
  Country: KR (occurrence: KR)
  Receive Date: 20170531
  Receipt Date: 20170531
  Transmission Date: 20170830
  Serious: Yes (Death)
  Sender: FDA-Public Use
  Company Number: KR-TEVA-771682ISR

PATIENT
  Age: 53 Year
  Sex: Female
  Weight: 63.9 kg

DRUGS (2)
  1. TRISENOX [Suspect]
     Active Substance: ARSENIC TRIOXIDE
     Dosage: 9.6 ML DAILY;
     Route: 042
     Dates: start: 20140127, end: 20140222
  2. TRISENOX [Suspect]
     Active Substance: ARSENIC TRIOXIDE
     Indication: ACUTE PROMYELOCYTIC LEUKAEMIA
     Dosage: 9.6 ML DAILY;
     Route: 042
     Dates: start: 20131210, end: 20140101

REACTIONS (1)
  - Cerebral haemorrhage [Fatal]

NARRATIVE: CASE EVENT DATE: 201411
